FAERS Safety Report 18442337 (Version 2)
Quarter: 2021Q3

REPORT INFORMATION
  Report Type: Report from Study
  Country: MX (occurrence: MX)
  Receive Date: 20201029
  Receipt Date: 20210906
  Transmission Date: 20211014
  Serious: Yes (Other)
  Sender: FDA-Public Use
  Company Number: PHHY2019MX206269

PATIENT
  Sex: Male
  Weight: 78 kg

DRUGS (16)
  1. GALVUS [Suspect]
     Active Substance: VILDAGLIPTIN
     Dosage: 1 DF (500 MG), QD (APPROXIMATELY 20 YEARS AGO)
     Route: 048
  2. LUCENTIS [Suspect]
     Active Substance: RANIBIZUMAB
     Dosage: 1 DF, QMO (0.5 MG) EVERY MONTH AND A HALF OR EVERY 2 MONTHS
     Route: 047
  3. LUCENTIS [Suspect]
     Active Substance: RANIBIZUMAB
     Indication: BLOOD PRESSURE INCREASED
     Dosage: 1 DF, QMO
     Route: 047
     Dates: start: 2018, end: 202002
  4. GLIBENCLAMIDE [Concomitant]
     Active Substance: GLYBURIDE
     Indication: DIABETES MELLITUS
  5. GALVUS [Suspect]
     Active Substance: VILDAGLIPTIN
     Indication: DIABETES MELLITUS
     Dosage: 1 DF, BID (2 YEARS AGO)
     Route: 048
  6. LUCENTIS [Suspect]
     Active Substance: RANIBIZUMAB
     Dosage: 1 DF, QMO (0.5 MG)
     Route: 047
     Dates: start: 2019
  7. LANTUS [Concomitant]
     Active Substance: INSULIN GLARGINE
     Indication: BLOOD GLUCOSE INCREASED
     Dosage: 50 IU, QHS
     Route: 059
     Dates: start: 2014
  8. LANTUS [Concomitant]
     Active Substance: INSULIN GLARGINE
     Indication: DIABETES MELLITUS
     Dosage: 10 IU (1 APPLICATION, AT NIGHT)
     Route: 030
  9. BRUCEN [Concomitant]
     Indication: DIABETES MELLITUS
     Dosage: 1 DF, BID (MORNING AND NIGHT)
     Route: 048
     Dates: start: 2002
  10. GALVUS [Suspect]
     Active Substance: VILDAGLIPTIN
     Indication: BLOOD GLUCOSE INCREASED
     Dosage: 1 DF, BID (50 MG)
     Route: 048
     Dates: start: 2000
  11. ZYMAR [Concomitant]
     Active Substance: GATIFLOXACIN
     Indication: PRODUCT USED FOR UNKNOWN INDICATION
     Dosage: UNK UNK, QD (8 DROPS)
     Route: 047
  12. METFORMIN [Suspect]
     Active Substance: METFORMIN HYDROCHLORIDE
     Indication: BLOOD GLUCOSE INCREASED
     Dosage: 500 MG, TID (STARTED 19 YEARS AGO)
     Route: 048
  13. BRUCEN [Concomitant]
     Dosage: 1 DF, QD (APPROXIMATELY 20 YEARS AGO)
     Route: 048
  14. LUCENTIS [Suspect]
     Active Substance: RANIBIZUMAB
     Indication: RETINAL DISORDER
     Dosage: UNK
     Route: 065
  15. METFORMIN [Suspect]
     Active Substance: METFORMIN HYDROCHLORIDE
     Indication: DIABETES MELLITUS
     Dosage: 850 MG, TID
     Route: 048
     Dates: start: 2000
  16. GLIBENCLAMIDE [Concomitant]
     Active Substance: GLYBURIDE
     Indication: BLOOD GLUCOSE INCREASED
     Dosage: 2 DF, QD
     Route: 048
     Dates: start: 2000

REACTIONS (6)
  - Cataract [Unknown]
  - Ocular discomfort [Recovered/Resolved]
  - Retinitis [Unknown]
  - Vision blurred [Not Recovered/Not Resolved]
  - Off label use [Unknown]
  - Visual impairment [Unknown]

NARRATIVE: CASE EVENT DATE: 2018
